FAERS Safety Report 14189708 (Version 2)
Quarter: 2017Q4

REPORT INFORMATION
  Report Type: Report from Study
  Country: US (occurrence: US)
  Receive Date: 20171115
  Receipt Date: 20171212
  Transmission Date: 20180321
  Serious: Yes (Death, Hospitalization)
  Sender: FDA-Public Use
  Company Number: PHEH2017US036894

PATIENT
  Age: 75 Year
  Sex: Male
  Weight: 56.1 kg

DRUGS (1)
  1. TOBI PODHALER [Suspect]
     Active Substance: TOBRAMYCIN
     Indication: BRONCHITIS BACTERIAL
     Dosage: 1 DF, BID
     Route: 055
     Dates: start: 20170708

REACTIONS (3)
  - Aspiration [Fatal]
  - Respiratory failure [Fatal]
  - Cerebrovascular accident [Fatal]

NARRATIVE: CASE EVENT DATE: 20170920
